FAERS Safety Report 9297714 (Version 1)
Quarter: 2013Q2

REPORT INFORMATION
  Report Type: Report from Study
  Country: BR (occurrence: BR)
  Receive Date: 20130520
  Receipt Date: 20130520
  Transmission Date: 20140414
  Serious: Yes (Hospitalization, Other)
  Sender: FDA-Public Use
  Company Number: PHHY2013BR049641

PATIENT
  Age: 73 Year
  Sex: Female
  Weight: 85 kg

DRUGS (4)
  1. DIOVAN AMLO [Suspect]
     Indication: HYPERTENSION
     Dosage: 1 DF(160 MG VALS, 5 MG AML), DAILY
     Route: 048
  2. DIOVAN AMLO FIX [Suspect]
     Indication: HYPERTENSION
     Dosage: 1 DF, (160 MG VALS, 5 MG AML), DAILY
     Route: 048
  3. DIOVAN AMLO FIX [Suspect]
     Dosage: 2 DF, (160 MG VAL, 5 MG AML), DAILY
     Route: 048
  4. NATRILIX [Concomitant]
     Indication: DIURETIC THERAPY
     Dosage: 1 DF, DAILY

REACTIONS (3)
  - Cerebrovascular accident [Recovered/Resolved with Sequelae]
  - Speech disorder [Not Recovered/Not Resolved]
  - Hypertension [Recovered/Resolved]
